FAERS Safety Report 14733492 (Version 1)
Quarter: 2018Q2

REPORT INFORMATION
  Report Type: Spontaneous
  Country: US (occurrence: US)
  Receive Date: 20180403
  Receipt Date: 20180403
  Transmission Date: 20180711
  Serious: No
  Sender: FDA-Public Use
  Company Number: None

PATIENT
  Age: 30 Year
  Sex: Female
  Weight: 48.6 kg

DRUGS (6)
  1. WELLBUTRIN [Concomitant]
     Active Substance: BUPROPION HYDROCHLORIDE
  2. LAMOTRIGINE. [Concomitant]
     Active Substance: LAMOTRIGINE
  3. DEXTROAMPHETAMINE SULFATE 10MG MALLINKRODT [Suspect]
     Active Substance: DEXTROAMPHETAMINE SULFATE
     Indication: ATTENTION DEFICIT/HYPERACTIVITY DISORDER
     Dosage: ?          QUANTITY:1 TABLET(S);?
     Route: 048
     Dates: start: 20180329, end: 20180401
  4. ACETAMINOPHEN. [Concomitant]
     Active Substance: ACETAMINOPHEN
  5. ESCIRALOPRAM [Concomitant]
  6. GAS-X [Concomitant]
     Active Substance: DIMETHICONE

REACTIONS (5)
  - Drug ineffective [None]
  - Product substitution issue [None]
  - Product size issue [None]
  - Product colour issue [None]
  - Withdrawal syndrome [None]

NARRATIVE: CASE EVENT DATE: 20180331
